FAERS Safety Report 6962359-0 (Version None)
Quarter: 2010Q3

REPORT INFORMATION
  Report Type: 
  Country: None (occurrence: None)
  Receive Date: 20100823
  Receipt Date: 20100616
  Transmission Date: 20110219
  Serious: No
  Sender: FDA-Public Use
  Company Number: 014069

PATIENT
  Sex: Female
  Weight: 63 kg

DRUGS (1)
  1. CIMZIA [Suspect]
     Indication: CROHN'S DISEASE
     Dosage: (SUBCUTANEOUS)
     Route: 058
     Dates: start: 20100517

REACTIONS (3)
  - ASTHENIA [None]
  - INFLUENZA LIKE ILLNESS [None]
  - PYREXIA [None]
